FAERS Safety Report 20446210 (Version 1)
Quarter: 2022Q1

REPORT INFORMATION
  Report Type: Spontaneous
  Country: US (occurrence: US)
  Receive Date: 20220208
  Receipt Date: 20220208
  Transmission Date: 20220424
  Serious: No
  Sender: FDA-Public Use
  Company Number: US-MAYNE PHARMA-2021MYN000687

PATIENT
  Sex: Female

DRUGS (2)
  1. NEXTSTELLIS [Suspect]
     Active Substance: DROSPIRENONE\ESTETROL MONOHYDRATE
     Indication: Menstruation irregular
     Dosage: UNK
     Route: 048
     Dates: start: 202111
  2. NEXTSTELLIS [Suspect]
     Active Substance: DROSPIRENONE\ESTETROL MONOHYDRATE
     Indication: Heavy menstrual bleeding

REACTIONS (3)
  - Product label confusion [Unknown]
  - Product administration interrupted [Unknown]
  - Polymenorrhoea [Unknown]
